FAERS Safety Report 15556058 (Version 7)
Quarter: 2019Q2

REPORT INFORMATION
  Report Type: Report from Study
  Country: US (occurrence: US)
  Receive Date: 20181026
  Receipt Date: 20190618
  Transmission Date: 20190711
  Serious: Yes (Other)
  Sender: FDA-Public Use
  Company Number: US-TESAROUBC-2018-TSO1388-US

PATIENT
  Age: 51 Year
  Sex: Female
  Weight: 68.1 kg

DRUGS (10)
  1. MARINOL [Concomitant]
     Active Substance: DRONABINOL
     Indication: NAUSEA
     Dosage: 5 MG, AC (BEFORE MEALS)
     Route: 048
     Dates: start: 20170413, end: 20170511
  2. CORTIFOAM [Concomitant]
     Active Substance: HYDROCORTISONE ACETATE
     Indication: HAEMORRHOIDS
     Dosage: 1 DF, UNK
     Route: 054
     Dates: start: 20170405, end: 201705
  3. CARBOPLATIN TAXOL [Concomitant]
     Active Substance: CARBOPLATIN\PACLITAXEL
     Indication: CHEMOTHERAPY
     Dosage: UNK
     Dates: start: 201601, end: 201607
  4. NIRAPARIB [Suspect]
     Active Substance: NIRAPARIB
     Indication: OVARIAN CANCER
     Dosage: 300 MG, QD
     Route: 048
     Dates: start: 20170111, end: 20170207
  5. LIDOCAINE. [Concomitant]
     Active Substance: LIDOCAINE
     Indication: ORAL PAIN
     Dosage: 5 ML, PRN
     Route: 048
     Dates: start: 20170413, end: 20170720
  6. NIRAPARIB [Suspect]
     Active Substance: NIRAPARIB
     Dosage: 100 MG, UNK
     Route: 048
     Dates: start: 20170525
  7. NEURONTIN [Concomitant]
     Active Substance: GABAPENTIN
     Indication: PRODUCT USED FOR UNKNOWN INDICATION
     Dosage: 300 MG, TID
     Route: 065
  8. SYNALAR [Concomitant]
     Active Substance: FLUOCINOLONE ACETONIDE
     Indication: PRODUCT USED FOR UNKNOWN INDICATION
     Dosage: UNK, TID
     Route: 065
  9. APRISO [Concomitant]
     Active Substance: MESALAMINE
     Indication: PRODUCT USED FOR UNKNOWN INDICATION
     Dosage: 0.375 MG, QD
  10. NIRAPARIB [Suspect]
     Active Substance: NIRAPARIB
     Dosage: 200 MG, UNK
     Route: 048
     Dates: start: 20170215, end: 20170511

REACTIONS (1)
  - Pneumonitis [Recovered/Resolved]

NARRATIVE: CASE EVENT DATE: 20170419
